FAERS Safety Report 18862545 (Version 1)
Quarter: 2021Q1

REPORT INFORMATION
  Report Type: Spontaneous
  Country: DE (occurrence: DE)
  Receive Date: 20210208
  Receipt Date: 20210208
  Transmission Date: 20210420
  Serious: Yes (Life-Threatening)
  Sender: FDA-Public Use
  Company Number: DE-TEVA-2021-DE-1873710

PATIENT
  Age: 30 Year
  Sex: Male
  Weight: 95 kg

DRUGS (2)
  1. OLANZAPIN [Suspect]
     Active Substance: OLANZAPINE
     Indication: PSYCHOTIC DISORDER
  2. OLANZAPIN [Suspect]
     Active Substance: OLANZAPINE
     Indication: HALLUCINATION
     Dosage: 2.5 MG, CREEPING IN
     Route: 048
     Dates: start: 20190621, end: 20190721

REACTIONS (2)
  - Head discomfort [Recovered/Resolved with Sequelae]
  - Thought blocking [Recovered/Resolved with Sequelae]

NARRATIVE: CASE EVENT DATE: 20190621
